FAERS Safety Report 7596870-9 (Version None)
Quarter: 2011Q3

REPORT INFORMATION
  Report Type: 
  Country: None (occurrence: None)
  Receive Date: 20110708
  Receipt Date: 20110627
  Transmission Date: 20111222
  Serious: Yes (Hospitalization, Other)
  Sender: FDA-Public Use
  Company Number: FR-PFIZER INC-2011149879

PATIENT
  Sex: Female

DRUGS (4)
  1. DIGOXIN [Concomitant]
     Indication: FOETAL ARRHYTHMIA
     Dosage: UNK
     Dates: start: 20100615
  2. FLECAINIDE ACETATE [Concomitant]
     Indication: FOETAL ARRHYTHMIA
     Dosage: UNK
     Dates: start: 20100601
  3. CORDARONE [Suspect]
     Indication: FOETAL ARRHYTHMIA
     Dosage: UNK
     Dates: start: 20100615, end: 20100622
  4. CORDARONE [Suspect]
     Dosage: UNK

REACTIONS (2)
  - HYPOTHYROIDISM [None]
  - PREMATURE RUPTURE OF MEMBRANES [None]
